FAERS Safety Report 21744723 (Version 2)
Quarter: 2023Q1

REPORT INFORMATION
  Report Type: Report from Study
  Country: US (occurrence: US)
  Receive Date: 20221219
  Receipt Date: 20230317
  Transmission Date: 20230418
  Serious: No
  Sender: FDA-Public Use
  Company Number: US-ABBVIE-4240871

PATIENT
  Sex: Female

DRUGS (1)
  1. IMBRUVICA [Suspect]
     Active Substance: IBRUTINIB
     Indication: Thyroid cancer
     Route: 048

REACTIONS (9)
  - Skin warm [Unknown]
  - Night sweats [Unknown]
  - Weight decreased [Unknown]
  - Pruritus [Unknown]
  - Scratch [Unknown]
  - Skin burning sensation [Unknown]
  - Skin laceration [Unknown]
  - Pain of skin [Unknown]
  - Pain [Unknown]
